FAERS Safety Report 8874815 (Version 3)
Quarter: 2012Q4

REPORT INFORMATION
  Report Type: 
  Country: US (occurrence: US)
  Receive Date: 20121023
  Receipt Date: 20121203
  Transmission Date: 20130627
  Serious: No
  Sender: FDA-Public Use
  Company Number: US-PFIZER INC-2012259314

PATIENT
  Age: 73 Year
  Sex: Male

DRUGS (1)
  1. EPIPEN [Suspect]
     Indication: WASP STING
     Dosage: UNK
     Dates: start: 20120806

REACTIONS (7)
  - Product quality issue [Unknown]
  - Blood pressure increased [Not Recovered/Not Resolved]
  - Arthralgia [Not Recovered/Not Resolved]
  - Headache [Not Recovered/Not Resolved]
  - Back pain [Not Recovered/Not Resolved]
  - Trigger finger [Not Recovered/Not Resolved]
  - Tendonitis [Not Recovered/Not Resolved]
